FAERS Safety Report 22139445 (Version 6)
Quarter: 2024Q1

REPORT INFORMATION
  Report Type: Report from Study
  Country: CA (occurrence: CA)
  Receive Date: 20230327
  Receipt Date: 20240301
  Transmission Date: 20240410
  Serious: Yes (Other)
  Sender: FDA-Public Use
  Company Number: CA-JNJFOC-20230358614

PATIENT
  Age: 24 Year
  Sex: Female
  Weight: 63 kg

DRUGS (2)
  1. STELARA [Suspect]
     Active Substance: USTEKINUMAB
     Indication: Colitis ulcerative
     Dosage: ON 22-MAR-2023, PATIENT RECEIVED 3RD USTEKINUMAB INJECTION AND PARTIAL MAYO WAS COMPLETED?ON 16-MAY-
     Route: 058
     Dates: start: 20221122
  2. STELARA [Suspect]
     Active Substance: USTEKINUMAB
     Route: 058
     Dates: start: 20210908, end: 20231227

REACTIONS (4)
  - Haematochezia [Recovering/Resolving]
  - General physical health deterioration [Unknown]
  - Frequent bowel movements [Unknown]
  - Unevaluable event [Unknown]

NARRATIVE: CASE EVENT DATE: 20230319
